FAERS Safety Report 4788140-9 (Version None)
Quarter: 2005Q4

REPORT INFORMATION
  Report Type: 
  Country: None (occurrence: None)
  Receive Date: 20051004
  Receipt Date: 20051004
  Transmission Date: 20060501
  Serious: Yes (Other)
  Sender: FDA-Public Use
  Company Number: None

PATIENT
  Sex: Female
  Weight: 75 kg

DRUGS (9)
  1. FLUOROURACIL [Suspect]
     Indication: BLADDER CANCER
     Dosage: SEE IMAGE
     Route: 042
     Dates: start: 20040913, end: 20041001
  2. FLUOROURACIL [Suspect]
     Indication: TRANSITIONAL CELL CARCINOMA
     Dosage: SEE IMAGE
     Route: 042
     Dates: start: 20040913, end: 20041001
  3. FLUOROURACIL [Suspect]
     Indication: BLADDER CANCER
     Dosage: SEE IMAGE
     Route: 042
     Dates: start: 20040928
  4. FLUOROURACIL [Suspect]
     Indication: TRANSITIONAL CELL CARCINOMA
     Dosage: SEE IMAGE
     Route: 042
     Dates: start: 20040928
  5. CISPLATIN [Suspect]
     Dosage: SEE IMAGE
     Dates: start: 20040913, end: 20040930
  6. CISPLATIN [Suspect]
     Dosage: SEE IMAGE
     Dates: start: 20040928
  7. GEMCITABINE [Suspect]
     Dosage: SEE IMAGE
     Dates: start: 20040928
  8. CISPLATIN [Suspect]
     Dosage: SEE IMAGE
     Dates: start: 20040928
  9. RADIATION [Suspect]
     Dosage: SEE IMAGE
     Dates: start: 20040928

REACTIONS (5)
  - HYDRONEPHROSIS [None]
  - REFUSAL OF TREATMENT BY PATIENT [None]
  - RENAL IMPAIRMENT [None]
  - URETERIC DILATATION [None]
  - URETERIC STENOSIS [None]
